FAERS Safety Report 10052649 (Version 1)
Quarter: 2014Q2

REPORT INFORMATION
  Report Type: Spontaneous
  Country: FR (occurrence: FR)
  Receive Date: 20140402
  Receipt Date: 20140402
  Transmission Date: 20141212
  Serious: Yes (Hospitalization)
  Sender: FDA-Public Use
  Company Number: FR-009507513-1403FRA012556

PATIENT
  Age: 99 Year
  Sex: Male

DRUGS (3)
  1. CELESTENE [Suspect]
     Indication: BACK PAIN
     Dosage: 4 MG, QD
     Route: 048
     Dates: start: 20140201, end: 20140206
  2. VOLTAREN EMULGEL [Suspect]
     Indication: BACK PAIN
     Dosage: UNK, PRN
     Route: 003
     Dates: start: 20140201, end: 20140206
  3. PREVISCAN [Suspect]
     Indication: ARRHYTHMIA SUPRAVENTRICULAR
     Dosage: 0.5 DF, QD
     Route: 048
     Dates: end: 20140206

REACTIONS (2)
  - Melaena [Recovered/Resolved]
  - Gastric ulcer [Recovering/Resolving]
